FAERS Safety Report 6861265-X (Version None)
Quarter: 2010Q3

REPORT INFORMATION
  Report Type: 
  Country: None (occurrence: None)
  Receive Date: 20100720
  Receipt Date: 20100708
  Transmission Date: 20110219
  Serious: Yes (Hospitalization)
  Sender: FDA-Public Use
  Company Number: US-CELGENEUS-163-20785-10070569

PATIENT
  Sex: Male

DRUGS (1)
  1. THALOMID [Suspect]
     Route: 048
     Dates: start: 20100501

REACTIONS (1)
  - APPENDICITIS [None]
